FAERS Safety Report 14448046 (Version 7)
Quarter: 2018Q2

REPORT INFORMATION
  Report Type: Spontaneous
  Country: GR (occurrence: GR)
  Receive Date: 20180126
  Receipt Date: 20180606
  Transmission Date: 20180711
  Serious: Yes (Life-Threatening, Hospitalization, Other)
  Sender: FDA-Public Use
  Company Number: GR-SEATTLE GENETICS-2018SGN00122

PATIENT
  Age: 33 Year
  Sex: Female
  Weight: 55 kg

DRUGS (15)
  1. AMIKACIN. [Concomitant]
     Active Substance: AMIKACIN
     Indication: FEBRILE NEUTROPENIA
     Dosage: 1 G, UNK
     Route: 042
     Dates: start: 20171109, end: 20171113
  2. FILGRASTIM [Concomitant]
     Active Substance: FILGRASTIM
     Dosage: 30 IU, UNK
     Route: 065
  3. METRONIDAZOLE. [Concomitant]
     Active Substance: METRONIDAZOLE
     Dosage: 500 MG, UNK
     Route: 065
  4. CEFEPIME HYDROCHLORIDE. [Concomitant]
     Active Substance: CEFEPIME HYDROCHLORIDE
     Indication: FEBRILE NEUTROPENIA
     Dosage: 2 MG, UNK
     Route: 042
  5. BRENTUXIMAB VEDOTIN [Suspect]
     Active Substance: BRENTUXIMAB VEDOTIN
     Indication: HODGKIN^S DISEASE
     Dosage: 110 MG, Q21D
     Route: 042
     Dates: start: 20170823, end: 20171113
  6. BRENTUXIMAB VEDOTIN [Suspect]
     Active Substance: BRENTUXIMAB VEDOTIN
     Dosage: UNK
     Route: 065
  7. METRONIDAZOLE. [Concomitant]
     Active Substance: METRONIDAZOLE
     Indication: FEBRILE NEUTROPENIA
     Dosage: 500 MG, UNK
     Route: 042
     Dates: start: 20171110, end: 20171113
  8. AMIKACIN. [Concomitant]
     Active Substance: AMIKACIN
     Dosage: 1 G, UNK
     Route: 065
  9. METRONIDAZOLE. [Concomitant]
     Active Substance: METRONIDAZOLE
     Dosage: 500 MG, UNK
     Route: 065
  10. FILGRASTIM [Concomitant]
     Active Substance: FILGRASTIM
     Dosage: 30 IU, UNK
     Route: 065
  11. METRONIDAZOLE. [Concomitant]
     Active Substance: METRONIDAZOLE
     Dosage: 500 MG, UNK
     Route: 065
  12. FILGRASTIM [Concomitant]
     Active Substance: FILGRASTIM
     Indication: FEBRILE NEUTROPENIA
     Dosage: 30 IU, UNK
     Route: 058
     Dates: start: 20171108, end: 20171113
  13. TRAMADOL HYDROCHLORIDE. [Concomitant]
     Active Substance: TRAMADOL HYDROCHLORIDE
     Indication: BONE PAIN
     Dosage: 50 MG, UNK
     Route: 042
  14. FILGRASTIM [Concomitant]
     Active Substance: FILGRASTIM
     Dosage: 30 IU, UNK
     Route: 065
  15. AMIKACIN. [Concomitant]
     Active Substance: AMIKACIN
     Dosage: 1 G, UNK
     Route: 065

REACTIONS (3)
  - Posterior reversible encephalopathy syndrome [Recovered/Resolved]
  - Febrile neutropenia [Unknown]
  - Muscle spasms [Unknown]

NARRATIVE: CASE EVENT DATE: 20171113
